FAERS Safety Report 9559153 (Version 1)
Quarter: 2013Q3

REPORT INFORMATION
  Report Type: Other
  Country: TW (occurrence: TW)
  Receive Date: 20130927
  Receipt Date: 20130927
  Transmission Date: 20140515
  Serious: Yes (Hospitalization)
  Sender: FDA-Public Use
  Company Number: TW-BRISTOL-MYERS SQUIBB COMPANY-19401728

PATIENT
  Age: 67 Year
  Sex: Female

DRUGS (2)
  1. WARFARIN SODIUM [Suspect]
     Indication: ANTICOAGULANT THERAPY
  2. MOXIFLOXACIN HCL [Interacting]
     Indication: PNEUMONIA

REACTIONS (3)
  - Peritoneal haemorrhage [Recovering/Resolving]
  - Abdominal wall haematoma [Recovering/Resolving]
  - Drug interaction [Recovering/Resolving]
